FAERS Safety Report 13792502 (Version 2)
Quarter: 2017Q3

REPORT INFORMATION
  Report Type: Report from Study
  Country: MX (occurrence: MX)
  Receive Date: 20170726
  Receipt Date: 20170801
  Transmission Date: 20171127
  Serious: Yes (Other)
  Sender: FDA-Public Use
  Company Number: MX-PFIZER INC-2017313411

PATIENT
  Age: 55 Year
  Sex: Female
  Weight: 83.9 kg

DRUGS (14)
  1. VITAMIN B [Concomitant]
     Active Substance: VITAMIN B
     Indication: PROPHYLAXIS
     Dosage: 250 MG, DAILY
     Route: 048
     Dates: start: 20160823, end: 20170523
  2. METHOTREXATE SODIUM. [Suspect]
     Active Substance: METHOTREXATE SODIUM
     Indication: RHEUMATOID ARTHRITIS
     Dosage: 20 MG, WEEKLY
     Route: 058
     Dates: start: 20160404
  3. NAPROXEN. [Concomitant]
     Active Substance: NAPROXEN
     Indication: RHEUMATOID ARTHRITIS
     Dosage: 500 MG, AS NEEDED
     Route: 048
     Dates: start: 20160404
  4. PRAVASTATIN. [Concomitant]
     Active Substance: PRAVASTATIN
     Indication: DYSLIPIDAEMIA
     Dosage: 2 DF, EVERY 48 HOURS
     Route: 048
     Dates: start: 20160404
  5. ISONIAZIDE [Concomitant]
     Active Substance: ISONIAZID
     Indication: LATENT TUBERCULOSIS
     Dosage: 300 MG, DAILY
     Route: 048
     Dates: start: 20160823, end: 20170523
  6. PREDNISONE. [Concomitant]
     Active Substance: PREDNISONE
     Indication: RHEUMATOID ARTHRITIS
     Dosage: 5 MG, DAILY
     Route: 048
     Dates: start: 20170621
  7. NIPHEDIPIN [Concomitant]
     Indication: HYPERTENSION
     Dosage: 30 MG, DAILY
     Route: 048
     Dates: start: 20160404
  8. LOSARTAN. [Concomitant]
     Active Substance: LOSARTAN
     Indication: HYPERTENSION
     Dosage: 50 MG, 2X/DAY
     Route: 048
     Dates: start: 20160404
  9. TOFACITINIB CITRATE [Suspect]
     Active Substance: TOFACITINIB CITRATE
     Indication: RHEUMATOID ARTHRITIS
     Dosage: 5 MG, 2X/DAY
     Route: 048
     Dates: start: 20160829, end: 20170717
  10. FOLIC ACID. [Concomitant]
     Active Substance: FOLIC ACID
     Indication: RHEUMATOID ARTHRITIS
     Dosage: 10 MG, WEEKLY
     Route: 048
     Dates: start: 20160404
  11. PARACETAMOL [Concomitant]
     Active Substance: ACETAMINOPHEN
     Indication: RHEUMATOID ARTHRITIS
     Dosage: 500 MG, AS NEEDED
     Route: 048
     Dates: start: 20160404
  12. BENZAFIBRATO [Concomitant]
     Indication: DYSLIPIDAEMIA
     Dosage: 1 DF, EVERY 48 HOURS
     Route: 048
     Dates: start: 20160404
  13. DICAL /00944201/ [Concomitant]
     Indication: OSTEOPENIA
     Dosage: 2 DF, DAILY
     Route: 048
     Dates: start: 20160404
  14. METFORMIN [Concomitant]
     Active Substance: METFORMIN HYDROCHLORIDE
     Indication: TYPE 2 DIABETES MELLITUS
     Dosage: 850 MG, 3X/DAY
     Route: 048
     Dates: start: 20160404

REACTIONS (1)
  - Papillary thyroid cancer [Recovering/Resolving]

NARRATIVE: CASE EVENT DATE: 20170627
